FAERS Safety Report 12494751 (Version 1)
Quarter: 2016Q2

REPORT INFORMATION
  Report Type: Other
  Country: GB (occurrence: GB)
  Receive Date: 20160624
  Receipt Date: 20160624
  Transmission Date: 20160815
  Serious: Yes (Hospitalization)
  Sender: FDA-Public Use
  Company Number: GB-CLARIS PHARMASERVICES-1054286

PATIENT
  Age: 62 Year
  Sex: Male
  Weight: 94 kg

DRUGS (12)
  1. AMITRIPTYLINE [Concomitant]
     Active Substance: AMITRIPTYLINE
  2. BISOPROLOL [Concomitant]
     Active Substance: BISOPROLOL
  3. ASPIRIN. [Concomitant]
     Active Substance: ASPIRIN
  4. ALFACALCIDOL [Concomitant]
     Active Substance: ALFACALCIDOL
  5. CIPROFLOXACIN. [Suspect]
     Active Substance: CIPROFLOXACIN
     Indication: OSTEOMYELITIS ACUTE
     Route: 048
     Dates: start: 20160522
  6. DARBEPOETIN ALFA [Concomitant]
     Active Substance: DARBEPOETIN ALFA
  7. NOVOMIX [Concomitant]
     Active Substance: INSULIN ASPART
  8. FLUCLOXACILLIN [Concomitant]
     Active Substance: FLUCLOXACILLIN
  9. ISOSORBIDE. [Concomitant]
     Active Substance: ISOSORBIDE
  10. TAZOCIN [Concomitant]
     Active Substance: PIPERACILLIN SODIUM\TAZOBACTAM SODIUM
  11. TRAMADOL. [Concomitant]
     Active Substance: TRAMADOL
  12. ATORVASTATIN [Suspect]
     Active Substance: ATORVASTATIN
     Route: 048

REACTIONS (3)
  - Myopathy [Recovering/Resolving]
  - Drug interaction [Unknown]
  - Muscular weakness [Recovering/Resolving]

NARRATIVE: CASE EVENT DATE: 20160526
